FAERS Safety Report 10713368 (Version 3)
Quarter: 2020Q1

REPORT INFORMATION
  Report Type: Spontaneous
  Country: IE (occurrence: IE)
  Receive Date: 20150115
  Receipt Date: 20200130
  Transmission Date: 20200409
  Serious: Yes (Death, Other)
  Sender: FDA-Public Use
  Company Number: IE-SA-2015SA003942

PATIENT
  Age: 44 Year
  Sex: Female
  Weight: 36 kg

DRUGS (18)
  1. CLEXANE [Suspect]
     Active Substance: ENOXAPARIN SODIUM
     Indication: PORTAL VEIN THROMBOSIS
     Dosage: 20 MG,QD
     Route: 058
     Dates: start: 20141215, end: 20141224
  2. MOVICOL [Concomitant]
     Active Substance: POLYETHYLENE GLYCOL 3350\POTASSIUM CHLORIDE\SODIUM BICARBONATE\SODIUM CHLORIDE
     Indication: CONSTIPATION PROPHYLAXIS
     Dosage: 2 DF,QD
     Route: 048
     Dates: start: 20141220
  3. MAGNESIUM [Concomitant]
     Active Substance: MAGNESIUM
     Indication: MINERAL SUPPLEMENTATION
     Dosage: 2 DF, QD
     Route: 048
     Dates: start: 20141223
  4. THIAMINE. [Concomitant]
     Active Substance: THIAMINE
     Indication: VITAMIN SUPPLEMENTATION
     Dosage: 100 MG, QD
     Route: 048
     Dates: start: 20141225
  5. DIAMICRON [Concomitant]
     Active Substance: GLICLAZIDE
     Indication: DIABETES MELLITUS
     Dosage: 30 MG,QD
     Route: 048
     Dates: start: 20141230
  6. RIBAVIRIN. [Concomitant]
     Active Substance: RIBAVIRIN
     Indication: HEPATIC ENCEPHALOPATHY
     Dosage: 400 MG, QD
     Route: 048
     Dates: start: 20141223, end: 20141225
  7. WARFARIN [Concomitant]
     Active Substance: WARFARIN
     Dosage: UNK
  8. LEDIPASVIR;SOFOSBUVIR [Suspect]
     Active Substance: LEDIPASVIR\SOFOSBUVIR
     Indication: HEPATITIS C
     Dosage: SOFOSBUVIR 400MG/LEDIPASVIR 90MG ONCE DAILY
     Route: 048
     Dates: start: 20141218, end: 20141225
  9. DELTACORTRIL [PREDNISOLONE] [Concomitant]
     Indication: LIVER TRANSPLANT
     Dosage: 10 MG, QD
     Dates: start: 20141215
  10. PHOSPHATES [SODIUM PHOSPHATE;SODIUM PHOSPHATE MONOBASIC (ANHYDROUS)] [Concomitant]
     Indication: SUPPLEMENTATION THERAPY
     Dosage: 2 DF
     Route: 048
     Dates: start: 20141217
  11. GALFER [Concomitant]
     Active Substance: IRON
     Indication: IRON DEFICIENCY ANAEMIA
     Dosage: 1 DF,QD
     Route: 048
     Dates: start: 20141223
  12. THIAMINE. [Concomitant]
     Active Substance: THIAMINE
     Indication: NUTRITIONAL SUPPLEMENTATION
  13. CALCICHEW-D3 [Concomitant]
     Active Substance: CALCIUM\CHOLECALCIFEROL
     Indication: OSTEOPOROSIS
     Dosage: 1 DF, QD
     Route: 048
     Dates: start: 20141225
  14. LOSEPINE [Concomitant]
     Indication: PROPHYLAXIS
     Dosage: 20 MG, QD
     Route: 048
     Dates: start: 20141218, end: 20141225
  15. RIBAVIRIN. [Suspect]
     Active Substance: RIBAVIRIN
     Indication: HEPATITIS C
     Dosage: 400 MG,BID
     Route: 048
     Dates: start: 20141218, end: 20141224
  16. DUPHALAC [Concomitant]
     Active Substance: LACTULOSE
     Indication: CONSTIPATION PROPHYLAXIS
     Dosage: 60 ML, QD
     Route: 048
     Dates: start: 20141224
  17. PROGRAF [Concomitant]
     Active Substance: TACROLIMUS
     Indication: LIVER TRANSPLANT
     Dosage: .5 MG,QD
     Dates: start: 20141222
  18. ELTROXIN [Concomitant]
     Active Substance: LEVOTHYROXINE
     Indication: HYPOTHYROIDISM
     Dosage: 75 UG,QD
     Route: 048
     Dates: start: 20141225

REACTIONS (5)
  - Subarachnoid haemorrhage [Fatal]
  - Coma scale abnormal [Fatal]
  - Hydrocephalus [Fatal]
  - Cerebellar haemorrhage [Fatal]
  - Gastrointestinal haemorrhage [Fatal]

NARRATIVE: CASE EVENT DATE: 20141224
